FAERS Safety Report 21983358 (Version 1)
Quarter: 2023Q1

REPORT INFORMATION
  Report Type: Other
  Country: None (occurrence: IR)
  Receive Date: 20230213
  Receipt Date: 20230213
  Transmission Date: 20230418
  Serious: Yes (Hospitalization)
  Sender: FDA-Public Use
  Company Number: IR-Appco Pharma LLC-2137820

PATIENT
  Age: 39 Year
  Sex: Male

DRUGS (6)
  1. CLINDAMYCIN PALMITATE HYDROCHLORIDE [Suspect]
     Active Substance: CLINDAMYCIN PALMITATE HYDROCHLORIDE
     Indication: Bronchiectasis
     Route: 065
  2. CEFTRIAXONE [Suspect]
     Active Substance: CEFTRIAXONE
     Route: 065
  3. CEFTAZIDIME [Suspect]
     Active Substance: CEFTAZIDIME
     Route: 065
  4. MEROPENEM [Suspect]
     Active Substance: MEROPENEM
     Route: 065
  5. VANCOMYCIN HYDROCHLORIDE [Suspect]
     Active Substance: VANCOMYCIN HYDROCHLORIDE
     Route: 065
  6. LEVOFLOXACIN [Suspect]
     Active Substance: LEVOFLOXACIN
     Route: 065

REACTIONS (1)
  - Drug ineffective [Unknown]
